FAERS Safety Report 10179284 (Version 1)
Quarter: 2014Q2

REPORT INFORMATION
  Report Type: Spontaneous
  Country: CA (occurrence: CA)
  Receive Date: 20140519
  Receipt Date: 20140519
  Transmission Date: 20141212
  Serious: Yes (Other)
  Sender: FDA-Public Use
  Company Number: CHPA2014CA006612

PATIENT
  Age: 53 Year
  Sex: Female

DRUGS (1)
  1. GAS-X EXTSTR CHEW TABS PEPPERMINT CREME [Suspect]
     Indication: FLATULENCE
     Dosage: 1 DF, PRN

REACTIONS (1)
  - Coeliac disease [Not Recovered/Not Resolved]
